FAERS Safety Report 6185848-8 (Version None)
Quarter: 2009Q2

REPORT INFORMATION
  Report Type: 
  Country: None (occurrence: None)
  Receive Date: 20090511
  Receipt Date: 20090501
  Transmission Date: 20091009
  Serious: Yes (Death)
  Sender: FDA-Public Use
  Company Number: A0778961A

PATIENT
  Age: 43 Year
  Sex: Female

DRUGS (3)
  1. ZOFRAN [Suspect]
     Indication: NAUSEA
     Dosage: 8MG THREE TIMES PER DAY
     Route: 048
     Dates: start: 20090301
  2. MORPHINE [Concomitant]
  3. GEMZAR [Concomitant]

REACTIONS (1)
  - BREAST CANCER METASTATIC [None]
